FAERS Safety Report 23595458 (Version 7)
Quarter: 2025Q1

REPORT INFORMATION
  Report Type: Report from Study
  Country: US (occurrence: US)
  Receive Date: 20240305
  Receipt Date: 20250310
  Transmission Date: 20250408
  Serious: Yes (Life-Threatening, Other)
  Sender: UCB
  Company Number: US-UCBSA-2023026001

PATIENT
  Age: 52 Year
  Sex: Female
  Weight: 90 kg

DRUGS (11)
  1. FINTEPLA [Suspect]
     Active Substance: FENFLURAMINE
     Indication: Lennox-Gastaut syndrome
     Dates: start: 20230125
  2. FINTEPLA [Suspect]
     Active Substance: FENFLURAMINE
     Dosage: 6 MILLILITER, 2X/DAY (BID)
     Route: 048
     Dates: start: 20230428
  3. FINTEPLA [Suspect]
     Active Substance: FENFLURAMINE
     Dosage: 6 MILLILITER, 2X/DAY (BID)
     Route: 048
     Dates: start: 2023
  4. FINTEPLA [Suspect]
     Active Substance: FENFLURAMINE
     Dosage: 6 MILLILITER, 2X/DAY (BID)
     Route: 048
     Dates: start: 2023
  5. FINTEPLA [Suspect]
     Active Substance: FENFLURAMINE
     Dosage: 6 MILLILITER, 2X/DAY (BID)
     Route: 048
     Dates: start: 2023
  6. FINTEPLA [Suspect]
     Active Substance: FENFLURAMINE
     Dosage: 6 MILLILITER, 2X/DAY (BID)
     Route: 048
  7. FINTEPLA [Suspect]
     Active Substance: FENFLURAMINE
     Dosage: 6 MILLILITER, 2X/DAY (BID)
     Route: 048
  8. FINTEPLA [Suspect]
     Active Substance: FENFLURAMINE
     Dosage: 6 MILLILITER, 2X/DAY (BID)
     Route: 048
  9. FINTEPLA [Suspect]
     Active Substance: FENFLURAMINE
  10. FINTEPLA [Suspect]
     Active Substance: FENFLURAMINE
  11. FINTEPLA [Suspect]
     Active Substance: FENFLURAMINE
     Dosage: 6 MILLILITER, 2X/DAY (BID)
     Route: 048

REACTIONS (15)
  - Renal failure [Not Recovered/Not Resolved]
  - Seizure [Not Recovered/Not Resolved]
  - Bone cancer [Not Recovered/Not Resolved]
  - Malignant melanoma [Not Recovered/Not Resolved]
  - Mitral valve incompetence [Not Recovered/Not Resolved]
  - Cardiac aneurysm [Not Recovered/Not Resolved]
  - Left ventricular hypertrophy [Not Recovered/Not Resolved]
  - Diastolic dysfunction [Not Recovered/Not Resolved]
  - Right ventricular dysfunction [Not Recovered/Not Resolved]
  - Pulmonary arterial pressure increased [Not Recovered/Not Resolved]
  - Aortic dilatation [Not Recovered/Not Resolved]
  - Somnolence [Recovered/Resolved]
  - Flank pain [Not Recovered/Not Resolved]
  - Depression [Recovered/Resolved]
  - Product dose omission issue [Unknown]

NARRATIVE: CASE EVENT DATE: 20230518
